FAERS Safety Report 16306821 (Version 2)
Quarter: 2021Q1

REPORT INFORMATION
  Report Type: Spontaneous
  Country: US (occurrence: US)
  Receive Date: 20190513
  Receipt Date: 20210218
  Transmission Date: 20210419
  Serious: Yes (Other)
  Sender: FDA-Public Use
  Company Number: US-ASTRAZENECA-2019SE64123

PATIENT
  Age: 504 Month
  Sex: Female
  Weight: 52.2 kg

DRUGS (30)
  1. EPZICOM [Concomitant]
     Active Substance: ABACAVIR SULFATE\LAMIVUDINE
     Dosage: THREE TIMES WEEKLY
     Dates: start: 202012
  2. IBUPROFEN. [Concomitant]
     Active Substance: IBUPROFEN
     Dosage: THREE TIMES WEEKLY
     Dates: start: 202012
  3. NEXIUM [Suspect]
     Active Substance: ESOMEPRAZOLE MAGNESIUM
     Indication: GASTROOESOPHAGEAL REFLUX DISEASE
     Dosage: PFS
     Route: 048
     Dates: start: 2001
  4. NEXIUM [Suspect]
     Active Substance: ESOMEPRAZOLE MAGNESIUM
     Indication: GASTROOESOPHAGEAL REFLUX DISEASE
     Route: 048
     Dates: start: 201105, end: 201105
  5. METFORMIN [Concomitant]
     Active Substance: METFORMIN HYDROCHLORIDE
     Indication: DIABETES MELLITUS
     Dates: start: 20120219, end: 20130612
  6. VENTOLIN [Concomitant]
     Active Substance: ALBUTEROL SULFATE
     Indication: ASTHMA
     Dates: start: 20120202, end: 20120420
  7. MULTI?VITAMIN [Concomitant]
     Active Substance: .ALPHA.-TOCOPHEROL ACETATE, DL-\ASCORBIC ACID\CYANOCOBALAMIN\FLUORIDE ION\FOLIC ACID\NIACIN\PYRIDOXINE\RIBOFLAVIN\THIAMINE\VITAMIN A\VITAMIN D
     Dates: start: 2020
  8. ATORVASTATIN [Concomitant]
     Active Substance: ATORVASTATIN
     Dosage: THREE TIMES WEEKLY
     Dates: start: 202012
  9. CYANOCOBALAMIN. [Concomitant]
     Active Substance: CYANOCOBALAMIN
     Dosage: THREE TIMES WEEKLY
     Dates: start: 202012
  10. TUMS [Concomitant]
     Active Substance: CALCIUM CARBONATE
     Dosage: THREE TIMES WEEKLY
     Dates: start: 202012
  11. LORATADINE. [Concomitant]
     Active Substance: LORATADINE
     Dosage: THREE TIMES WEEKLY
     Dates: start: 202012
  12. PREVACID [Suspect]
     Active Substance: LANSOPRAZOLE
     Indication: GASTROOESOPHAGEAL REFLUX DISEASE
     Route: 065
     Dates: start: 201105
  13. ACYCLOVIR. [Concomitant]
     Active Substance: ACYCLOVIR
     Dosage: THREE TIMES WEEKLY
     Dates: start: 202012
  14. GLYBURIDE. [Concomitant]
     Active Substance: GLYBURIDE
     Dosage: THREE TIMES WEEKLY
     Dates: start: 202012
  15. FLUTICASONE. [Concomitant]
     Active Substance: FLUTICASONE
     Dosage: THREE TIMES WEEKLY
     Dates: start: 202012
  16. LEVOFLOXACIN. [Concomitant]
     Active Substance: LEVOFLOXACIN
     Dosage: THREE TIMES WEEKLY
     Dates: start: 202012
  17. PREVACID [Suspect]
     Active Substance: LANSOPRAZOLE
     Indication: GASTROOESOPHAGEAL REFLUX DISEASE
     Route: 065
     Dates: start: 201105, end: 201105
  18. PREVACID [Suspect]
     Active Substance: LANSOPRAZOLE
     Indication: GASTROOESOPHAGEAL REFLUX DISEASE
     Dosage: GENERIC
     Route: 065
     Dates: start: 201102
  19. PROAIR HFA [Concomitant]
     Active Substance: ALBUTEROL SULFATE
     Dosage: THREE TIMES WEEKLY
     Dates: start: 202012
  20. HYDROCODONE [Concomitant]
     Active Substance: HYDROCODONE
     Dosage: THREE TIMES WEEKLY
     Dates: start: 202012
  21. ASPIRIN. [Concomitant]
     Active Substance: ASPIRIN
     Indication: ANALGESIC THERAPY
     Dates: start: 20130612
  22. SUSTIVA [Concomitant]
     Active Substance: EFAVIRENZ
     Dosage: THREE TIMES WEEKLY
     Dates: start: 202012
  23. FOLIC ACID. [Concomitant]
     Active Substance: FOLIC ACID
     Dosage: THREE TIMES WEEKLY
     Dates: start: 202012
  24. ATORVASTATIN [Concomitant]
     Active Substance: ATORVASTATIN
     Indication: BLOOD CHOLESTEROL INCREASED
     Dates: start: 20120315, end: 20130612
  25. LIPITOR [Concomitant]
     Active Substance: ATORVASTATIN CALCIUM
     Indication: BLOOD CHOLESTEROL INCREASED
     Dates: start: 20110527, end: 20111012
  26. ONDASETRON [Concomitant]
     Active Substance: ONDANSETRON
     Dosage: THREE TIMES WEEKLY
     Dates: start: 202012
  27. FLUOXETINE [Concomitant]
     Active Substance: FLUOXETINE HYDROCHLORIDE
     Dosage: THREE TIMES WEEKLY
     Dates: start: 202012
  28. ADVAIR HFA [Concomitant]
     Active Substance: FLUTICASONE PROPIONATE\SALMETEROL XINAFOATE
     Dosage: THREE TIMES WEEKLY
     Dates: start: 202012
  29. MONTELUKAST [Concomitant]
     Active Substance: MONTELUKAST SODIUM
     Dosage: THREE TIMES WEEKLY
     Dates: start: 202012
  30. METRONIDAZOLE. [Concomitant]
     Active Substance: METRONIDAZOLE
     Dosage: THREE TIMES WEEKLY
     Dates: start: 202012

REACTIONS (1)
  - Chronic kidney disease [Not Recovered/Not Resolved]

NARRATIVE: CASE EVENT DATE: 200608
